FAERS Safety Report 6000107-1 (Version None)
Quarter: 2008Q4

REPORT INFORMATION
  Report Type: 
  Country: None (occurrence: None)
  Receive Date: 20081211
  Receipt Date: 20080731
  Transmission Date: 20090506
  Serious: No
  Sender: FDA-Public Use
  Company Number: US023450

PATIENT
  Age: 59 Year
  Sex: Male
  Weight: 110.6777 kg

DRUGS (4)
  1. TREANDA [Suspect]
     Indication: CHRONIC LYMPHOCYTIC LEUKAEMIA
     Dosage: 2 TREATMENTS/28 DAYS INTRAVENOUS
     Route: 042
     Dates: start: 20080428, end: 20080429
  2. TREANDA [Suspect]
     Indication: CHRONIC LYMPHOCYTIC LEUKAEMIA
     Dosage: 2 TREATMENTS/28 DAYS INTRAVENOUS
     Route: 042
  3. ALLOPURINOL [Concomitant]
  4. NEULASTA [Concomitant]

REACTIONS (3)
  - ABDOMINAL PAIN [None]
  - RED BLOOD CELL COUNT DECREASED [None]
  - SPLENOMEGALY [None]
